FAERS Safety Report 7014344-0 (Version None)
Quarter: 2010Q3

REPORT INFORMATION
  Report Type: 
  Country: None (occurrence: None)
  Receive Date: 20100927
  Receipt Date: 20100916
  Transmission Date: 20110219
  Serious: Yes (Other)
  Sender: FDA-Public Use
  Company Number: US-TYCO HEALTHCARE/MALLINCKRODT-T201000780

PATIENT
  Sex: Male
  Weight: 176.87 kg

DRUGS (8)
  1. OPTIMARK [Suspect]
     Indication: NUCLEAR MAGNETIC RESONANCE IMAGING
     Dosage: UNK
     Dates: start: 20060222
  2. MAGNEVIST [Suspect]
     Indication: NUCLEAR MAGNETIC RESONANCE IMAGING ABDOMINAL
     Dosage: UNK
     Dates: start: 20010302
  3. MAGNEVIST [Suspect]
     Indication: NUCLEAR MAGNETIC RESONANCE IMAGING BRAIN
     Dosage: UNK
     Dates: start: 20040329
  4. MAGNEVIST [Suspect]
     Indication: NUCLEAR MAGNETIC RESONANCE IMAGING
     Dosage: UNK
     Dates: start: 20040901, end: 20040901
  5. WARFARIN [Concomitant]
     Indication: COAGULOPATHY
  6. TESTOSTERONE [Concomitant]
     Indication: BLOOD TESTOSTERONE DECREASED
  7. AVAPRO [Concomitant]
     Dosage: UNK
  8. FLOMAX [Concomitant]
     Dosage: UNK

REACTIONS (14)
  - AMNESIA [None]
  - ANXIETY [None]
  - ATRIAL FLUTTER [None]
  - BRONCHITIS [None]
  - DEPRESSION [None]
  - DERMAL CYST [None]
  - FALL [None]
  - HYPERHIDROSIS [None]
  - JOINT INJURY [None]
  - NEPHROGENIC SYSTEMIC FIBROSIS [None]
  - OSTEOARTHRITIS [None]
  - SCHAMBERG'S DISEASE [None]
  - SKIN LESION [None]
  - VENOUS THROMBOSIS [None]
